FAERS Safety Report 8124118-5 (Version None)
Quarter: 2012Q1

REPORT INFORMATION
  Report Type: 
  Country: None (occurrence: None)
  Receive Date: 20120209
  Receipt Date: 20120201
  Transmission Date: 20120608
  Serious: Yes (Other)
  Sender: FDA-Public Use
  Company Number: KR-US-EMD SERONO, INC.-7101921

PATIENT
  Sex: Female
  Weight: 58 kg

DRUGS (2)
  1. REBIF [Suspect]
     Indication: MULTIPLE SCLEROSIS
     Route: 058
     Dates: start: 20110727
  2. IBUPROFEN [Concomitant]
     Indication: PAIN
     Dosage: 1 -6 UNIT
     Route: 048
     Dates: start: 20110801

REACTIONS (3)
  - RETINAL HAEMORRHAGE [None]
  - EYE ALLERGY [None]
  - VISUAL IMPAIRMENT [None]
